FAERS Safety Report 6270418-3 (Version None)
Quarter: 2009Q3

REPORT INFORMATION
  Report Type: 
  Country: None (occurrence: None)
  Receive Date: 20090716
  Receipt Date: 20090707
  Transmission Date: 20100115
  Serious: Yes (Hospitalization)
  Sender: FDA-Public Use
  Company Number: PHHY2009FR28156

PATIENT
  Sex: Male

DRUGS (4)
  1. MYFORTIC [Suspect]
     Dosage: 720 MG, BID
     Route: 048
     Dates: start: 20040101
  2. NEORAL [Suspect]
     Dosage: 100 MG, BID
     Route: 048
     Dates: start: 20030101
  3. INEGY [Concomitant]
     Dosage: 10 MG, QD
     Route: 048
     Dates: start: 20030101
  4. TRIATEC [Concomitant]
     Dosage: 2.5 MG, QD
     Route: 048
     Dates: start: 20030101

REACTIONS (6)
  - ABDOMINAL PAIN [None]
  - ANORECTAL DISORDER [None]
  - CONSTIPATION [None]
  - DIARRHOEA HAEMORRHAGIC [None]
  - PROCTITIS [None]
  - PYREXIA [None]
